FAERS Safety Report 9142699 (Version 4)
Quarter: 2013Q2

REPORT INFORMATION
  Report Type: Report from Study
  Country: ES (occurrence: ES)
  Receive Date: 20130306
  Receipt Date: 20130523
  Transmission Date: 20140414
  Serious: Yes (Death, Hospitalization)
  Sender: FDA-Public Use
  Company Number: ES-ELI_LILLY_AND_COMPANY-ES201302008929

PATIENT
  Age: 81 Year
  Sex: Female
  Weight: 50 kg

DRUGS (5)
  1. TGFB RI KINASE INHIBITOR (LY2157299) [Suspect]
     Indication: PANCREATIC CARCINOMA
     Dosage: 1 DF, OTHER
     Route: 048
     Dates: start: 20121212
  2. GEMCITABINE HYDROCHLORIDE [Suspect]
     Indication: PANCREATIC CARCINOMA
     Dosage: 1000 MG/M2, OTHER
     Route: 042
     Dates: start: 20121219
  3. AMERIDE [Concomitant]
     Indication: HYPERTENSION
     Dosage: UNK
     Dates: start: 2009
  4. SIMVASTIN [Concomitant]
     Indication: HYPERCHOLESTEROLAEMIA
     Dosage: UNK
     Dates: start: 2010
  5. GABAPENTIN [Concomitant]
     Indication: PAIN
     Dosage: UNK
     Dates: start: 201205

REACTIONS (2)
  - Lung infection [Fatal]
  - Pulmonary toxicity [Fatal]
